FAERS Safety Report 5089012-5 (Version None)
Quarter: 2006Q3

REPORT INFORMATION
  Report Type: 
  Country: None (occurrence: None)
  Receive Date: 20060825
  Receipt Date: 20060330
  Transmission Date: 20061208
  Serious: Yes (Hospitalization)
  Sender: FDA-Public Use
  Company Number: 2006AP01546

PATIENT
  Age: 28761 Day
  Sex: Female
  Weight: 57.3 kg

DRUGS (6)
  1. CRESTOR [Suspect]
     Indication: HYPERCHOLESTEROLAEMIA
     Route: 048
     Dates: start: 20060216
  2. 8-HOUR BAYER [Concomitant]
     Indication: CEREBRAL INFARCTION
     Dosage: STARTED BEFORE CRESTOR STARTED
     Route: 048
  3. APLACE [Concomitant]
     Indication: GASTRITIS
     Dosage: STARTED BEFORE CRESTOR STARTED
     Route: 048
  4. ADALAT [Concomitant]
     Indication: HYPERTENSION
     Dosage: STARTED BEFORE CRESTOR STARTED
     Route: 048
  5. OLMETEC [Concomitant]
     Indication: HYPERTENSION
     Dosage: STARTED BEFORE CRESTOR STARTED
     Route: 048
  6. PURSENNID [Concomitant]
     Indication: CONSTIPATION
     Dosage: STARTED BEFORE CRESTOR STARTED
     Route: 048

REACTIONS (2)
  - CEREBRAL INFARCTION [None]
  - DISEASE RECURRENCE [None]
